FAERS Safety Report 9301819 (Version 1)
Quarter: 2013Q2

REPORT INFORMATION
  Report Type: Spontaneous
  Country: US (occurrence: US)
  Receive Date: 20130521
  Receipt Date: 20130521
  Transmission Date: 20140414
  Serious: No
  Sender: FDA-Public Use
  Company Number: US-TEVA-352583USA

PATIENT
  Sex: Female

DRUGS (2)
  1. ACTIQ [Suspect]
     Indication: BREAKTHROUGH PAIN
     Dosage: 400 MICROGRAM DAILY; PRN
     Route: 002
     Dates: start: 201202
  2. OXYCONTIN [Concomitant]
     Indication: PAIN
     Dosage: 240 MILLIGRAM DAILY;
     Route: 048

REACTIONS (2)
  - Pain [Not Recovered/Not Resolved]
  - Drug ineffective [Not Recovered/Not Resolved]
